FAERS Safety Report 9339288 (Version 2)
Quarter: 2013Q2

REPORT INFORMATION
  Report Type: Spontaneous
  Country: US (occurrence: US)
  Receive Date: 20130610
  Receipt Date: 20130627
  Transmission Date: 20140414
  Serious: Yes (Hospitalization, Other)
  Sender: FDA-Public Use
  Company Number: US-MERCK-1306USA000311

PATIENT
  Age: 64 Year
  Sex: Male

DRUGS (8)
  1. ZOLINZA [Suspect]
     Indication: NON-HODGKIN^S LYMPHOMA
     Dosage: 4 CAPSULES ONCE DAILY
     Route: 048
     Dates: start: 20130206
  2. ZOLINZA [Suspect]
     Dosage: 3 CAPSULES ONCE DAILY
     Route: 048
     Dates: start: 20130212, end: 20130530
  3. AMITRIPTYLINE HYDROCHLORIDE [Concomitant]
     Dosage: UNK
  4. OMEPRAZOLE [Concomitant]
     Dosage: UNK
  5. POTASSIUM (UNSPECIFIED) [Concomitant]
     Dosage: UNK
  6. FUROSEMIDE [Concomitant]
     Dosage: UNK
  7. OMEGA-3 MARINE TRIGLYCERIDES [Concomitant]
     Dosage: UNK
  8. VITAMIN D (UNSPECIFIED) [Concomitant]
     Dosage: UNK

REACTIONS (3)
  - Hypoaesthesia [Unknown]
  - Non-Hodgkin^s lymphoma [Not Recovered/Not Resolved]
  - Diarrhoea [Unknown]
